FAERS Safety Report 5501675-6 (Version None)
Quarter: 2007Q4

REPORT INFORMATION
  Report Type: 
  Country: None (occurrence: None)
  Receive Date: 20071030
  Receipt Date: 20071019
  Transmission Date: 20080405
  Serious: Yes (Hospitalization)
  Sender: FDA-Public Use
  Company Number: CA-JNJFOC-20071005595

PATIENT
  Sex: Male

DRUGS (1)
  1. REMICADE [Suspect]
     Indication: CROHN'S DISEASE
     Dosage: 21 INFUSIONS ON UNSPECIFIED DATES.
     Route: 042

REACTIONS (3)
  - ABDOMINAL PAIN [None]
  - CHILLS [None]
  - PYREXIA [None]
